FAERS Safety Report 6096647-X (Version None)
Quarter: 2009Q1

REPORT INFORMATION
  Report Type: 
  Country: None (occurrence: None)
  Receive Date: 20090227
  Receipt Date: 20090127
  Transmission Date: 20090719
  Serious: No
  Sender: FDA-Public Use
  Company Number: US-BAYER-200912116NA

PATIENT
  Age: 16 Year
  Sex: Female

DRUGS (1)
  1. YAZ [Suspect]
     Indication: POLYMENORRHOEA
     Route: 048
     Dates: start: 20080801, end: 20081101

REACTIONS (6)
  - ABDOMINAL PAIN UPPER [None]
  - FATIGUE [None]
  - HEADACHE [None]
  - HYPOPHAGIA [None]
  - NAUSEA [None]
  - NO ADVERSE EVENT [None]
